FAERS Safety Report 22614201 (Version 1)
Quarter: 2023Q2

REPORT INFORMATION
  Report Type: Spontaneous
  Country: BR (occurrence: None)
  Receive Date: 20230619
  Receipt Date: 20230619
  Transmission Date: 20230722
  Serious: Yes (Hospitalization, Other)
  Sender: FDA-Public Use
  Company Number: BR-MICRO LABS LIMITED-ML2023-03269

PATIENT
  Age: 57 Year
  Sex: Male

DRUGS (1)
  1. LAMIVUDINE\NEVIRAPINE\ZIDOVUDINE [Suspect]
     Active Substance: LAMIVUDINE\NEVIRAPINE\ZIDOVUDINE
     Indication: HIV infection

REACTIONS (1)
  - Aplastic anaemia [Recovered/Resolved]
